FAERS Safety Report 6261074-9 (Version None)
Quarter: 2009Q3

REPORT INFORMATION
  Report Type: 
  Country: None (occurrence: None)
  Receive Date: 20090707
  Receipt Date: 20090624
  Transmission Date: 20100115
  Serious: Yes (Hospitalization)
  Sender: FDA-Public Use
  Company Number: 2009AP002404

PATIENT
  Age: 66 Year
  Sex: Female

DRUGS (1)
  1. LITHIUM CARBONATE CAP [Suspect]
     Dosage: 300 MG; QD;

REACTIONS (9)
  - CONFUSIONAL STATE [None]
  - GOITRE [None]
  - HYPERCALCAEMIA [None]
  - HYPERPARATHYROIDISM PRIMARY [None]
  - HYPOCALCIURIA [None]
  - MUCOSAL DRYNESS [None]
  - OSTEOPENIA [None]
  - PARATHYROID TUMOUR BENIGN [None]
  - THYROID CANCER [None]
